FAERS Safety Report 13442423 (Version 1)
Quarter: 2017Q2

REPORT INFORMATION
  Report Type: Spontaneous
  Country: US (occurrence: US)
  Receive Date: 20170413
  Receipt Date: 20170413
  Transmission Date: 20170830
  Serious: Yes (Death)
  Sender: FDA-Public Use
  Company Number: None

PATIENT
  Age: 55 Year

DRUGS (8)
  1. ABRAXANE [Suspect]
     Active Substance: PACLITAXEL
     Indication: NEOPLASM MALIGNANT
     Dosage: ?          OTHER FREQUENCY:WEEKLY;?
     Route: 042
  2. BUTALBITAL AND ACETAMINOPHEN [Concomitant]
     Active Substance: ACETAMINOPHEN\BUTALBITAL
  3. SANCUSO [Concomitant]
     Active Substance: GRANISETRON
  4. ASPIRIN. [Concomitant]
     Active Substance: ASPIRIN
  5. LASIX [Concomitant]
     Active Substance: FUROSEMIDE
  6. LEVOTHYROXINE SODIUM. [Concomitant]
     Active Substance: LEVOTHYROXINE SODIUM
  7. EQ LORATADINE [Concomitant]
  8. LANTUS [Concomitant]
     Active Substance: INSULIN GLARGINE

REACTIONS (1)
  - Death [None]
